FAERS Safety Report 9086751 (Version 1)
Quarter: 2013Q1

REPORT INFORMATION
  Report Type: Report from Study
  Country: US (occurrence: US)
  Receive Date: 20130130
  Receipt Date: 20130130
  Transmission Date: 20140127
  Serious: No
  Sender: FDA-Public Use
  Company Number: US-ABBOTT-12P-163-0988772-00

PATIENT
  Age: 52 Year
  Sex: Male
  Weight: 70.37 kg

DRUGS (5)
  1. HUMIRA [Suspect]
     Indication: RHEUMATOID ARTHRITIS
     Route: 058
     Dates: start: 201201
  2. PREDNISONE [Concomitant]
     Indication: RHEUMATOID ARTHRITIS
  3. NAPROSYN [Concomitant]
     Indication: RHEUMATOID ARTHRITIS
  4. METHOTREXATE [Concomitant]
     Indication: RHEUMATOID ARTHRITIS
  5. FOLIC ACID [Concomitant]
     Indication: VITAMIN SUPPLEMENTATION

REACTIONS (2)
  - Nasopharyngitis [Recovered/Resolved]
  - Respiratory tract infection [Recovered/Resolved]
